FAERS Safety Report 4569808-6 (Version None)
Quarter: 2005Q1

REPORT INFORMATION
  Report Type: 
  Country: None (occurrence: None)
  Receive Date: 20050203
  Receipt Date: 20050107
  Transmission Date: 20050727
  Serious: Yes (Life-Threatening, Hospitalization)
  Sender: FDA-Public Use
  Company Number: US-MERCK-0501USA00739

PATIENT
  Age: 74 Year
  Sex: Female

DRUGS (13)
  1. VIOXX [Suspect]
     Indication: ARTHRITIS
     Route: 048
     Dates: end: 20040930
  2. ZOLOFT [Concomitant]
     Route: 065
  3. PRAVACHOL [Concomitant]
     Route: 065
  4. SYNTHROID [Concomitant]
     Route: 065
  5. COREG [Concomitant]
     Route: 065
  6. AVAPRO [Concomitant]
     Route: 065
  7. PLAVIX [Concomitant]
     Route: 065
  8. DETROL LA [Concomitant]
     Route: 065
  9. ASPIRIN [Concomitant]
     Route: 065
  10. VITAMINS (UNSPECIFIED) [Concomitant]
     Route: 065
  11. UBIDECARENONE [Concomitant]
     Route: 065
  12. ARIMIDEX [Concomitant]
     Route: 065
  13. BENADRYL [Concomitant]
     Route: 065

REACTIONS (7)
  - ACUTE CORONARY SYNDROME [None]
  - ARTHRALGIA [None]
  - BACK PAIN [None]
  - CORONARY ARTERY ATHEROSCLEROSIS [None]
  - HYPERCHOLESTEROLAEMIA [None]
  - MYOCARDIAL INFARCTION [None]
  - SINUS BRADYCARDIA [None]
